FAERS Safety Report 7358836-3 (Version None)
Quarter: 2011Q1

REPORT INFORMATION
  Report Type: 
  Country: None (occurrence: None)
  Receive Date: 20110317
  Receipt Date: 20110311
  Transmission Date: 20110831
  Serious: Yes (Death, Life-Threatening, Hospitalization, Disabling)
  Sender: FDA-Public Use
  Company Number: B0699756A

PATIENT
  Sex: Male
  Weight: 58 kg

DRUGS (6)
  1. LAPATINIB [Suspect]
     Indication: GASTRIC CANCER
     Route: 048
     Dates: start: 20101229
  2. CAPECITABINE [Suspect]
     Indication: GASTRIC CANCER
     Dosage: 1700MGM2 TWICE PER DAY
     Route: 048
     Dates: start: 20101229
  3. OXALIPLATIN [Suspect]
     Indication: GASTRIC CANCER
     Dosage: 220MG PER DAY
     Route: 042
     Dates: start: 20101229
  4. DECADRON [Concomitant]
     Dosage: .5MG TWICE PER DAY
     Route: 048
     Dates: start: 20101229
  5. LANSOX [Concomitant]
     Dosage: 30MG PER DAY
     Route: 048
     Dates: start: 20101101
  6. CLEXANE [Concomitant]
     Indication: VENA CAVA THROMBOSIS
     Dosage: 6000IU PER DAY
     Route: 058
     Dates: start: 20101123

REACTIONS (6)
  - ENCEPHALITIS [None]
  - APHASIA [None]
  - DIARRHOEA [None]
  - EPILEPSY [None]
  - PYREXIA [None]
  - VASCULITIS [None]
